FAERS Safety Report 7214733-5 (Version None)
Quarter: 2011Q1

REPORT INFORMATION
  Report Type: 
  Country: None (occurrence: None)
  Receive Date: 20110107
  Receipt Date: 20100308
  Transmission Date: 20110831
  Serious: No
  Sender: FDA-Public Use
  Company Number: A0838983A

PATIENT
  Age: 48 Year
  Sex: Male

DRUGS (3)
  1. UNKNOWN MEDICATION [Concomitant]
  2. LOVAZA [Suspect]
     Dosage: 2TAB TWICE PER DAY
     Route: 048
     Dates: start: 20080101
  3. VENLAFAXINE [Concomitant]

REACTIONS (5)
  - VISION BLURRED [None]
  - ABDOMINAL DISCOMFORT [None]
  - PRODUCT QUALITY ISSUE [None]
  - VOMITING [None]
  - NAUSEA [None]
